FAERS Safety Report 5893030-4 (Version None)
Quarter: 2008Q3

REPORT INFORMATION
  Report Type: 
  Country: None (occurrence: None)
  Receive Date: 20080923
  Receipt Date: 20080221
  Transmission Date: 20090109
  Serious: No
  Sender: FDA-Public Use
  Company Number: US-ASTRAZENECA-2007UW01961

PATIENT
  Age: 433 Month
  Sex: Female
  Weight: 102.7 kg

DRUGS (33)
  1. SEROQUEL [Suspect]
     Indication: SLEEP DISORDER
     Dosage: 25 MG TO 300 MG
     Route: 048
     Dates: start: 20031120
  2. DEPAKOTE ER [Concomitant]
  3. TRAZODONE HCL [Concomitant]
  4. LEXAPRO [Concomitant]
  5. LEXAPRO [Concomitant]
  6. LEXAPRO [Concomitant]
  7. CLONAZEPAM [Concomitant]
  8. CLONAZEPAM [Concomitant]
  9. TRICOR [Concomitant]
  10. TRICOR [Concomitant]
  11. NAPROXEN [Concomitant]
  12. AMBIEN [Concomitant]
  13. AMBIEN [Concomitant]
  14. METAGLIP [Concomitant]
     Dosage: 2.5 TO 500 MG
  15. LIPITOR [Concomitant]
  16. LITHIUM CARBONATE [Concomitant]
  17. NIASPAN ER [Concomitant]
  18. ABILIFY [Concomitant]
  19. ABILIFY [Concomitant]
  20. ACTOS [Concomitant]
  21. ACTOS [Concomitant]
  22. GEMFIBROZIL [Concomitant]
  23. GLIP/METFORM [Concomitant]
  24. LYRICA [Concomitant]
  25. LYRICA [Concomitant]
  26. LYRICA [Concomitant]
  27. SPIRIVA HANDIHLR [Concomitant]
  28. HUMALOG [Concomitant]
     Dosage: 75/25 INJ
  29. METFORMIN HCL [Concomitant]
  30. LISINOPRIL [Concomitant]
  31. ASCENSIA CONTOUR TES [Concomitant]
  32. ASCENSIA MICROLET MIS [Concomitant]
  33. LANTUS [Concomitant]

REACTIONS (8)
  - ABDOMINAL PAIN [None]
  - BLOOD CHOLESTEROL INCREASED [None]
  - BLOOD TRIGLYCERIDES INCREASED [None]
  - IMPAIRED HEALING [None]
  - OBESITY [None]
  - RHEUMATOID ARTHRITIS [None]
  - TYPE 2 DIABETES MELLITUS [None]
  - VISION BLURRED [None]
